FAERS Safety Report 15610507 (Version 1)
Quarter: 2018Q4

REPORT INFORMATION
  Report Type: Spontaneous
  Country: US (occurrence: US)
  Receive Date: 20181113
  Receipt Date: 20181113
  Transmission Date: 20190205
  Serious: No
  Sender: FDA-Public Use
  Company Number: US-ROCHE-2072401

PATIENT
  Age: 7 Year
  Sex: Female

DRUGS (1)
  1. TAMIFLU [Suspect]
     Active Substance: OSELTAMIVIR PHOSPHATE
     Indication: INFLUENZA
     Dosage: ONGOING:NO
     Route: 048
     Dates: start: 20180208, end: 20180208

REACTIONS (3)
  - Vomiting [Unknown]
  - Incoherent [Unknown]
  - Somnolence [Unknown]

NARRATIVE: CASE EVENT DATE: 20180208
